FAERS Safety Report 5013900-9 (Version None)
Quarter: 2006Q2

REPORT INFORMATION
  Report Type: 
  Country: None (occurrence: None)
  Receive Date: 20060525
  Receipt Date: 20060517
  Transmission Date: 20061013
  Serious: Yes (Other)
  Sender: FDA-Public Use
  Company Number: 2006053696

PATIENT
  Age: 42 Year
  Sex: Female

DRUGS (2)
  1. EPELIN KAPSEALS (PHENYTOIN SODIUM) [Suspect]
     Indication: EPILEPSY
     Dosage: 300 MG (100 MG, 3 IN 1 D), ORAL
     Route: 048
     Dates: end: 20060201
  2. HIDANTAL (PHENYTOIN) [Suspect]
     Indication: EPILEPSY
     Dosage: 300 MG (100 G, 3 IN 1 D), ORAL
     Route: 048
     Dates: start: 20060201

REACTIONS (7)
  - CONVULSION [None]
  - DRUG INEFFECTIVE [None]
  - DYSGEUSIA [None]
  - FEAR [None]
  - INSOMNIA [None]
  - NERVOUS SYSTEM DISORDER [None]
  - THERAPEUTIC RESPONSE UNEXPECTED WITH DRUG SUBSTITUTION [None]
